FAERS Safety Report 8131058-4 (Version None)
Quarter: 2012Q1

REPORT INFORMATION
  Report Type: 
  Country: None (occurrence: None)
  Receive Date: 20120206
  Receipt Date: 20120201
  Transmission Date: 20120608
  Serious: Yes (Death, Other)
  Sender: FDA-Public Use
  Company Number: ADR-2012-00031

PATIENT
  Age: 51 Year
  Sex: Female

DRUGS (2)
  1. BACLOFEN [Suspect]
     Indication: MUSCLE SPASTICITY
     Dosage: SEE B5
  2. BACLOFEN [Suspect]
     Indication: BRAIN INJURY
     Dosage: SEE B5

REACTIONS (3)
  - TONIC CONVULSION [None]
  - CARDIAC ARREST [None]
  - DYSPNOEA [None]
